FAERS Safety Report 10350727 (Version 1)
Quarter: 2014Q3

REPORT INFORMATION
  Report Type: Spontaneous
  Country: US (occurrence: US)
  Receive Date: 20140730
  Receipt Date: 20140730
  Transmission Date: 20150326
  Serious: No
  Sender: FDA-Public Use
  Company Number: US-BRISTOL-MYERS SQUIBB COMPANY-20683629

PATIENT
  Age: 66 Year
  Sex: Male

DRUGS (1)
  1. FARXIGA [Suspect]
     Active Substance: DAPAGLIFLOZIN PROPANEDIOL
     Indication: TYPE 2 DIABETES MELLITUS
     Dosage: EXP DT:MAR17

REACTIONS (8)
  - Hyperhidrosis [Unknown]
  - Tremor [Unknown]
  - Confusional state [Unknown]
  - Headache [Unknown]
  - Irritability [Unknown]
  - Somnolence [Unknown]
  - Memory impairment [Unknown]
  - Asthenia [Unknown]
